FAERS Safety Report 19621429 (Version 1)
Quarter: 2021Q3

REPORT INFORMATION
  Report Type: Spontaneous
  Country: US (occurrence: US)
  Receive Date: 20210728
  Receipt Date: 20210728
  Transmission Date: 20211014
  Serious: No
  Sender: FDA-Public Use
  Company Number: None

PATIENT
  Sex: Female
  Weight: 103.95 kg

DRUGS (8)
  1. CALCIUM 500 + D [Concomitant]
     Active Substance: CALCIUM\VITAMIN D
  2. KISQALI [Suspect]
     Active Substance: RIBOCICLIB
     Indication: BREAST CANCER FEMALE
     Route: 048
  3. ASPIRIN. [Concomitant]
     Active Substance: ASPIRIN
  4. SYNTHROID [Concomitant]
     Active Substance: LEVOTHYROXINE SODIUM
  5. VITAMIN E [Concomitant]
     Active Substance: .ALPHA.-TOCOPHEROL
  6. GABAPENTIN. [Concomitant]
     Active Substance: GABAPENTIN
  7. PAROXETINE. [Concomitant]
     Active Substance: PAROXETINE
  8. FEMARA [Concomitant]
     Active Substance: LETROZOLE

REACTIONS (1)
  - Disease progression [None]
